FAERS Safety Report 5922624-2 (Version None)
Quarter: 2008Q4

REPORT INFORMATION
  Report Type: 
  Country: None (occurrence: None)
  Receive Date: 20081017
  Receipt Date: 20081016
  Transmission Date: 20090506
  Serious: Yes (Death, Other)
  Sender: FDA-Public Use
  Company Number: PHBS2008DE06057

PATIENT
  Age: 7 Day

DRUGS (4)
  1. CYCLOSPORINE [Suspect]
     Indication: LIVER TRANSPLANT
     Dosage: UNK
  2. METHYLPREDNISOLONE 16MG TAB [Suspect]
     Dosage: 10 MG/KG, UNK
  3. METHYLPREDNISOLONE 16MG TAB [Suspect]
     Dosage: 60 MG/M2, UNK
  4. METHYLPREDNISOLONE 16MG TAB [Suspect]
     Dosage: 40 MG/M2, UNK

REACTIONS (2)
  - INTRA-ABDOMINAL HAEMORRHAGE [None]
  - MULTI-ORGAN FAILURE [None]
